FAERS Safety Report 9505936 (Version 1)
Quarter: 2013Q1

REPORT INFORMATION
  Report Type: Spontaneous
  Country: US (occurrence: None)
  Receive Date: 20130305
  Receipt Date: 20130305
  Transmission Date: 20140127
  Serious: No
  Sender: FDA-Public Use
  Company Number: 1000039747

PATIENT
  Age: 88 Year
  Sex: Female

DRUGS (3)
  1. DALIRESP [Suspect]
     Indication: CHRONIC OBSTRUCTIVE PULMONARY DISEASE
     Dosage: 1 IN 1 D
     Route: 048
     Dates: start: 2012, end: 20121020
  2. OMEPRAZOLE [Concomitant]
  3. ARMOUR THYROID [Concomitant]

REACTIONS (3)
  - Abdominal pain [None]
  - Nausea [None]
  - Influenza like illness [None]
